FAERS Safety Report 5010292-6 (Version None)
Quarter: 2006Q2

REPORT INFORMATION
  Report Type: 
  Country: None (occurrence: None)
  Receive Date: 20060516
  Receipt Date: 20060502
  Transmission Date: 20061013
  Serious: Yes (Hospitalization, Disabling)
  Sender: FDA-Public Use
  Company Number: THYM-10930

PATIENT
  Age: 51 Year
  Sex: Male
  Weight: 95 kg

DRUGS (16)
  1. THYMOGLOBULIN [Suspect]
     Indication: KIDNEY TRANSPLANT REJECTION
     Dates: start: 20051001
  2. THYMOGLOBULIN [Suspect]
     Indication: RENAL TRANSPLANT
     Dates: start: 20051001
  3. THYMOGLOBULIN [Suspect]
     Indication: KIDNEY TRANSPLANT REJECTION
     Dosage: 140 MG QD IV
     Route: 042
     Dates: start: 20060318, end: 20060319
  4. THYMOGLOBULIN [Suspect]
     Indication: RENAL TRANSPLANT
     Dosage: 140 MG QD IV
     Route: 042
     Dates: start: 20060318, end: 20060319
  5. THYMOGLOBULIN [Suspect]
     Indication: KIDNEY TRANSPLANT REJECTION
     Dosage: 150 MG QD IV
     Route: 042
     Dates: start: 20060320, end: 20060322
  6. THYMOGLOBULIN [Suspect]
     Indication: RENAL TRANSPLANT
     Dosage: 150 MG QD IV
     Route: 042
     Dates: start: 20060320, end: 20060322
  7. PROGRAF [Concomitant]
  8. MYFORTIC [Concomitant]
  9. PREDNISONE [Concomitant]
  10. BIDIL [Concomitant]
  11. METOPROLOL [Concomitant]
  12. NEXIUM [Concomitant]
  13. MVI (MULTIVITAMINS) [Concomitant]
  14. CALCIUM CARBONATE [Concomitant]
  15. VALCYTE [Concomitant]
  16. BACTRIM [Concomitant]

REACTIONS (8)
  - ARTHRALGIA [None]
  - ARTHRITIS [None]
  - CSF WHITE BLOOD CELL COUNT INCREASED [None]
  - DIFFICULTY IN WALKING [None]
  - ORAL INTAKE REDUCED [None]
  - RED BLOOD CELL SEDIMENTATION RATE INCREASED [None]
  - SERUM SICKNESS [None]
  - SYNOVIAL FLUID RED BLOOD CELLS POSITIVE [None]
